FAERS Safety Report 19683915 (Version 1)
Quarter: 2021Q3

REPORT INFORMATION
  Report Type: Spontaneous
  Country: US (occurrence: US)
  Receive Date: 20210811
  Receipt Date: 20210811
  Transmission Date: 20211014
  Serious: No
  Sender: FDA-Public Use
  Company Number: US-ALKERMES INC.-ALK-2021-002444

PATIENT
  Sex: Male

DRUGS (4)
  1. VIVITROL [Suspect]
     Active Substance: NALTREXONE
     Indication: ALCOHOLISM
     Dosage: 380 MILLIGRAM, Q4WK
     Route: 030
     Dates: start: 20210713
  2. VIVITROL [Suspect]
     Active Substance: NALTREXONE
     Dosage: 380 MILLIGRAM, Q4WK
     Route: 030
     Dates: start: 20210511, end: 20210511
  3. VIVITROL [Suspect]
     Active Substance: NALTREXONE
     Dosage: 380 MILLIGRAM, Q4WK
     Route: 030
     Dates: start: 20210409, end: 20210409
  4. VIVITROL [Suspect]
     Active Substance: NALTREXONE
     Dosage: 380 MILLIGRAM, Q4WK
     Route: 030
     Dates: start: 20210608, end: 20210608

REACTIONS (9)
  - Feeling abnormal [Not Recovered/Not Resolved]
  - Injection site swelling [Recovered/Resolved]
  - Injection site pain [Unknown]
  - Injection site induration [Unknown]
  - Alcohol use disorder [Unknown]
  - Injection site reaction [Unknown]
  - Fatigue [Not Recovered/Not Resolved]
  - Injection site mass [Recovered/Resolved]
  - Injection site inflammation [Unknown]

NARRATIVE: CASE EVENT DATE: 2021
